FAERS Safety Report 23245504 (Version 1)
Quarter: 2023Q4

REPORT INFORMATION
  Report Type: Spontaneous
  Country: US (occurrence: US)
  Receive Date: 20231130
  Receipt Date: 20231130
  Transmission Date: 20240110
  Serious: No
  Sender: FDA-Public Use
  Company Number: US-ALVOGEN-2023091550

PATIENT
  Sex: Female

DRUGS (3)
  1. TERIPARATIDE [Suspect]
     Active Substance: TERIPARATIDE
     Indication: Product used for unknown indication
     Route: 058
     Dates: start: 202211
  2. TERIPARATIDE [Suspect]
     Active Substance: TERIPARATIDE
     Indication: Product used for unknown indication
     Route: 058
  3. TERIPARATIDE [Suspect]
     Active Substance: TERIPARATIDE
     Indication: Product used for unknown indication
     Dosage: EXPIRATION DATE: UU-MAY-2024?STRENGTH: 620 MCG/2.48 ML (250 MCG/ML)?20 MCG PER DOSE
     Route: 058

REACTIONS (3)
  - Device malfunction [Unknown]
  - Drug delivery system issue [Unknown]
  - Product dose omission issue [Unknown]
